FAERS Safety Report 5620016-7 (Version None)
Quarter: 2008Q1

REPORT INFORMATION
  Report Type: 
  Country: None (occurrence: None)
  Receive Date: 20080208
  Receipt Date: 20071228
  Transmission Date: 20080703
  Serious: Yes (Death)
  Sender: FDA-Public Use
  Company Number: US-ABBOTT-07P-163-0431518-00

PATIENT
  Sex: Female

DRUGS (2)
  1. KALETRA [Suspect]
     Indication: HIV INFECTION
     Route: 048
     Dates: end: 20071201
  2. KALETRA [Suspect]
     Indication: HIV INFECTION
     Dosage: 80/20 MG ORAL SOLUTION
     Route: 048
     Dates: start: 20071001

REACTIONS (1)
  - DEATH [None]
